FAERS Safety Report 7037963-4 (Version None)
Quarter: 2010Q4

REPORT INFORMATION
  Report Type: 
  Country: None (occurrence: None)
  Receive Date: 20101011
  Receipt Date: 20100930
  Transmission Date: 20110411
  Serious: Yes (Hospitalization)
  Sender: FDA-Public Use
  Company Number: BR-ELI_LILLY_AND_COMPANY-BR201010000883

PATIENT
  Sex: Female
  Weight: 61.2 kg

DRUGS (16)
  1. PRASUGREL HYDROCHLORIDE [Suspect]
     Indication: ACUTE CORONARY SYNDROME
     Dates: start: 20090728
  2. CLOPIDOGREL [Concomitant]
     Dosage: 300 MG, UNK
     Dates: start: 20090721
  3. CLOPIDOGREL [Concomitant]
     Dosage: 75 MG, UNK
  4. ENALAPRIL MALEATE [Concomitant]
     Indication: HYPERTENSION
     Dates: start: 20070901
  5. ANCORON [Concomitant]
     Indication: HYPERTENSION
     Dates: start: 20070901
  6. ATORVASTATINA [Concomitant]
     Indication: HYPERTENSION
     Dates: start: 20090721
  7. ALDACTONE [Concomitant]
     Indication: HYPERTENSION
     Dates: start: 20080101
  8. SUSTRATE [Concomitant]
     Indication: HYPERTENSION
     Dates: start: 20090721
  9. FUROSEMIDE [Concomitant]
     Indication: HYPERTENSION
     Dates: start: 20070901
  10. METOCLOPRAMIDE HYDROCHLORIDE [Concomitant]
     Indication: DYSPNOEA
     Dates: start: 20090809
  11. CIPROFLOXACINO [Concomitant]
     Indication: URINARY TRACT INFECTION
     Dates: start: 20090918, end: 20090922
  12. POTASSIUM CHLORIDE [Concomitant]
     Indication: HYPONATRAEMIA
     Dates: start: 20090918, end: 20090918
  13. GLUCONATO DE CALCIO [Concomitant]
     Indication: HYPONATRAEMIA
     Dates: start: 20090918, end: 20090918
  14. HIDROCORTISONA                     /00028601/ [Concomitant]
     Indication: URINARY TRACT INFECTION
     Dates: start: 20090919, end: 20090919
  15. ESPIRONOLACTONA [Concomitant]
     Indication: CARDIAC FAILURE CHRONIC
     Dates: start: 20080326, end: 20091001
  16. OMEPRAZOLE [Concomitant]
     Indication: PROPHYLAXIS
     Dates: start: 20070925, end: 20091001

REACTIONS (1)
  - PULMONARY EMBOLISM [None]
